FAERS Safety Report 13673581 (Version 2)
Quarter: 2017Q4

REPORT INFORMATION
  Report Type: Spontaneous
  Country: US (occurrence: US)
  Receive Date: 20170621
  Receipt Date: 20171009
  Transmission Date: 20180320
  Serious: Yes (Hospitalization, Other)
  Sender: FDA-Public Use
  Company Number: US-SUN PHARMACEUTICAL INDUSTRIES LTD-2017US-143466

PATIENT
  Sex: Female

DRUGS (3)
  1. DIGOXIN. [Suspect]
     Active Substance: DIGOXIN
     Indication: PRODUCT USED FOR UNKNOWN INDICATION
     Dosage: UNK
     Route: 065
  2. METOPROLOL TARTRATE. [Concomitant]
     Active Substance: METOPROLOL TARTRATE
     Indication: PRODUCT USED FOR UNKNOWN INDICATION
     Route: 065
  3. DILTIAZEM. [Concomitant]
     Active Substance: DILTIAZEM
     Indication: PRODUCT USED FOR UNKNOWN INDICATION
     Route: 065

REACTIONS (10)
  - Overdose [Unknown]
  - Lethargy [Recovered/Resolved]
  - Nausea [Recovered/Resolved]
  - Mental status changes [Recovered/Resolved]
  - Electrocardiogram abnormal [Unknown]
  - Atrioventricular block [Unknown]
  - Vision blurred [Recovered/Resolved]
  - Bradycardia [Recovered/Resolved]
  - Drug dispensing error [Unknown]
  - Diarrhoea [Recovered/Resolved]
